FAERS Safety Report 7041988-2 (Version None)
Quarter: 2010Q4

REPORT INFORMATION
  Report Type: 
  Country: None (occurrence: None)
  Receive Date: 20101013
  Receipt Date: 20100715
  Transmission Date: 20110411
  Serious: No
  Sender: FDA-Public Use
  Company Number: US-ASTRAZENECA-2010SE33183

PATIENT
  Age: 85 Year
  Sex: Female
  Weight: 49.4 kg

DRUGS (3)
  1. SYMBICORT [Suspect]
     Route: 055
     Dates: start: 20070101
  2. NEXIUM [Suspect]
     Route: 048
  3. CRESTOR [Suspect]
     Route: 048

REACTIONS (2)
  - ARTHRALGIA [None]
  - HEARING IMPAIRED [None]
